FAERS Safety Report 9241880 (Version 2)
Quarter: 2013Q2

REPORT INFORMATION
  Report Type: Report from Study
  Country: AR (occurrence: AR)
  Receive Date: 20130419
  Receipt Date: 20130515
  Transmission Date: 20140414
  Serious: Yes (Other)
  Sender: FDA-Public Use
  Company Number: PHHY2013AR037294

PATIENT
  Sex: Female

DRUGS (2)
  1. DIOVAN [Suspect]
     Indication: HYPERTENSION
     Dosage: 1 DF (80 MG VALS), DAILY
     Route: 048
     Dates: end: 201304
  2. DIOVAN [Suspect]
     Dosage: 1.5 DF (80 MG VALS), UNK
     Route: 048
     Dates: start: 201304

REACTIONS (3)
  - Cardiac valve disease [Recovering/Resolving]
  - Blood pressure increased [Recovering/Resolving]
  - Wrong technique in drug usage process [Unknown]
